FAERS Safety Report 21267259 (Version 1)
Quarter: 2022Q3

REPORT INFORMATION
  Report Type: Spontaneous
  Country: US (occurrence: US)
  Receive Date: 20220829
  Receipt Date: 20220829
  Transmission Date: 20221027
  Serious: Yes (Death, Other)
  Sender: FDA-Public Use
  Company Number: US-BIOVITRUM-2022US10015

PATIENT
  Age: 56 Year
  Sex: Male

DRUGS (27)
  1. DOPTELET [Suspect]
     Active Substance: AVATROMBOPAG MALEATE
     Indication: Product used for unknown indication
     Dates: start: 20220516, end: 20220821
  2. DOPTELET [Suspect]
     Active Substance: AVATROMBOPAG MALEATE
     Dates: start: 20220705
  3. ASPIRIN [Concomitant]
     Active Substance: ASPIRIN
  4. BUMETANIDE [Concomitant]
     Active Substance: BUMETANIDE
  5. CARVEDILOL [Concomitant]
     Active Substance: CARVEDILOL
     Dosage: TWO TIMES A DAY WITH MEAL
  6. CHOLECALCIFEROL [Concomitant]
     Active Substance: CHOLECALCIFEROL
     Dosage: VITAMIN D3 2,000 UNIT CAPSULE TWICE A WEEK
  7. CINACALCET HCI [Concomitant]
     Dosage: 30 MG BY MOUTH NIGHTLY
  8. COENZYME Q10 [Concomitant]
     Active Substance: DIETARY SUPPLEMENT\UBIDECARENONE
     Dosage: DAILY
  9. ESCITALOPRAM [Concomitant]
     Active Substance: ESCITALOPRAM OXALATE
     Dosage: DAILY
  10. GABAPENTIN [Concomitant]
     Active Substance: GABAPENTIN
     Dates: start: 20220112
  11. ACETAMINOPHEN\HYDROCODONE [Concomitant]
     Active Substance: ACETAMINOPHEN\HYDROCODONE
     Indication: Pain
     Dosage: 10-325 MG PER TABLET, TAKE 1-2 TABLETS BY MOUTH EVERY 6 (SIX) HOURS AS NEEDED
     Dates: start: 20220425, end: 20220818
  12. ICOSAPENT ETHYL [Concomitant]
     Active Substance: ICOSAPENT ETHYL
  13. INSULIN GLARGINE [Concomitant]
     Active Substance: INSULIN GLARGINE
     Dosage: INJECTS 60 UNITS UNDER THE SKIN DAILY
  14. METHYLPREDNISOLONE [Concomitant]
     Active Substance: METHYLPREDNISOLONE
     Dates: start: 20220214
  15. NIFEDIPINE [Concomitant]
     Active Substance: NIFEDIPINE
  16. PIOGLITAZONE [Concomitant]
     Active Substance: PIOGLITAZONE
     Dates: start: 20170725
  17. POTASSIUM CHLORIDE [Concomitant]
     Active Substance: POTASSIUM CHLORIDE
     Dosage: 20 MEQ CR TABLET, TAKE 20 MEQ BY MOUTH DAILY. - ORAL
  18. ROMIPLOSTIM [Concomitant]
     Active Substance: ROMIPLOSTIM
     Dosage: INJECT UNDER THE SKIN EVERY 7 DAYS
     Dates: start: 20220117
  19. ROMIPLOSTIM [Concomitant]
     Active Substance: ROMIPLOSTIM
     Dosage: INJECT UNDER THE SKIN EVERY 7 DAYS
     Dates: start: 20220307
  20. SEVELAMER [Concomitant]
     Active Substance: SEVELAMER
     Dates: start: 20170714
  21. SIMVASTATIN [Concomitant]
     Active Substance: SIMVASTATIN
     Dosage: DAILY
  22. THYROID,PORK [Concomitant]
     Dosage: DAILY
  23. ACETAMINOPHEN [Concomitant]
     Active Substance: ACETAMINOPHEN
     Dosage: 500 MG, ORAL, ONCE, GIVE 30 MINUTES PRIOR TO INFUSION UNLESS OTHERWISE INDICATED
     Dates: start: 20200212
  24. DEXAMETHASONE [Concomitant]
     Active Substance: DEXAMETHASONE
     Dosage: 4 MG, SLOW IV PUSH, ONCE, GIVE 30 MINUTES PRIOR TO INFUSION UNLESS OTHERWISE INCLICACED.
     Dates: start: 20201202
  25. DIPHENHYDRAMINE [Concomitant]
     Active Substance: DIPHENHYDRAMINE
     Dosage: 25 MG, SLOW IV PUSH, ONCE, GIVE 30 MINUTES PRIOR TO INFUSION UNLESS OTHERWISE INDICATED.
  26. PRIVIGEN [Concomitant]
     Active Substance: HUMAN IMMUNOGLOBULIN G
     Dosage: (HUMAN)(GAMMAGARD) 10% INFUSION 35 G?0.5 G/KG (35 G), IV PIGGYBACK, ONCE, INITIAL (FIRST 30 MINUTES)
     Dates: start: 20201202
  27. OMEGA-3 FATTY ACIDS [Concomitant]
     Active Substance: OMEGA-3 FATTY ACIDS

REACTIONS (1)
  - Death [Fatal]

NARRATIVE: CASE EVENT DATE: 20220822
